FAERS Safety Report 9683630 (Version 1)
Quarter: 2013Q4

REPORT INFORMATION
  Report Type: Spontaneous
  Country: FI (occurrence: FI)
  Receive Date: 20131112
  Receipt Date: 20131112
  Transmission Date: 20140711
  Serious: Yes (Disabling)
  Sender: FDA-Public Use
  Company Number: FI-PFIZER INC-2013320141

PATIENT
  Age: 33 Year
  Sex: Female

DRUGS (5)
  1. LYRICA [Suspect]
     Indication: ANXIETY
     Dosage: 150 MG-400 MG
     Route: 048
     Dates: start: 20090120, end: 20100102
  2. LYRICA [Suspect]
     Indication: PAIN
  3. LIORESAL ^NOVARTIS^ [Concomitant]
     Indication: MUSCLE SPASMS
     Dosage: 5 MG, AS NEEDED
  4. DIAPAM [Concomitant]
     Indication: INSOMNIA
     Dosage: 5 MG, AS NEEDED
  5. KETIPINOR [Concomitant]
     Dosage: 50 MG, IN THE EVENING

REACTIONS (21)
  - Cardiac arrest [Unknown]
  - Bundle branch block right [Unknown]
  - Arrhythmia [Unknown]
  - Cardiac disorder [Unknown]
  - Nausea [Unknown]
  - Asthenia [Unknown]
  - Chest discomfort [Unknown]
  - Initial insomnia [Unknown]
  - Cognitive disorder [Unknown]
  - Memory impairment [Unknown]
  - Speech disorder [Unknown]
  - Tongue movement disturbance [Unknown]
  - Thinking abnormal [Unknown]
  - Bradyphrenia [Unknown]
  - Reading disorder [Unknown]
  - Derealisation [Unknown]
  - Dizziness [Unknown]
  - Visual impairment [Unknown]
  - Dysphemia [Unknown]
  - Feeling abnormal [Unknown]
  - Muscular weakness [Unknown]
